FAERS Safety Report 25229070 (Version 2)
Quarter: 2025Q3

REPORT INFORMATION
  Report Type: Report from Study
  Country: CN (occurrence: CN)
  Receive Date: 20250423
  Receipt Date: 20250814
  Transmission Date: 20251021
  Serious: Yes (Other)
  Sender: UCB
  Company Number: CN-UCBSA-2025022950

PATIENT
  Age: 9 Year
  Sex: Female
  Weight: 19 kg

DRUGS (5)
  1. LACOSAMIDE [Suspect]
     Active Substance: LACOSAMIDE
     Indication: Epilepsy
     Dosage: 50 MILLIGRAM, 2X/DAY (BID)
     Route: 041
     Dates: start: 20230926, end: 20231001
  2. LACOSAMIDE [Suspect]
     Active Substance: LACOSAMIDE
     Route: 041
     Dates: start: 20231002, end: 20231011
  3. LACOSAMIDE [Suspect]
     Active Substance: LACOSAMIDE
     Dosage: 50 MILLIGRAM, QD
     Route: 041
     Dates: start: 20231018, end: 20231020
  4. LACOSAMIDE [Suspect]
     Active Substance: LACOSAMIDE
     Dosage: 50 MILLIGRAM, 2X/DAY (BID)
     Route: 041
     Dates: start: 20231021, end: 20231023
  5. LEVETIRACETAM [Concomitant]
     Active Substance: LEVETIRACETAM
     Indication: Epilepsy
     Dosage: 0.15 GRAM, ONCE DAILY (QD)
     Route: 048
     Dates: start: 20231012, end: 20231020

REACTIONS (1)
  - Drug-induced liver injury [Recovered/Resolved]

NARRATIVE: CASE EVENT DATE: 20231022
